FAERS Safety Report 9501264 (Version 3)
Quarter: 2013Q4

REPORT INFORMATION
  Report Type: Spontaneous
  Country: US (occurrence: None)
  Receive Date: 20130107
  Receipt Date: 20131226
  Transmission Date: 20140711
  Serious: Yes (Other)
  Sender: FDA-Public Use
  Company Number: PHEH2012US021452

PATIENT
  Age: 65 Year
  Sex: Female

DRUGS (15)
  1. GILENYA [Suspect]
     Indication: MULTIPLE SCLEROSIS
     Route: 048
     Dates: start: 20121022, end: 20121030
  2. LISINOPRIL (LISINOPRIL) [Concomitant]
  3. PRAVASTATIN (PRAVASTATIN) [Concomitant]
  4. ALENDRONATE (ALENDRONATE SODIUM) [Concomitant]
  5. NORTRIPTYLINE HCL (NORTRIPTYLINE HYDROCHLORIDE) [Concomitant]
  6. TRAMADOL HCL [Concomitant]
  7. VITAMIN D (ERGOCALCIFEROL) [Concomitant]
  8. MULTI-VIT (VITAMINS NOS) [Concomitant]
  9. FOLIC ACID (FOLIC ACID) [Concomitant]
  10. TYSABRI (NATALIZUMAB) [Concomitant]
  11. NUEDEXTA (DEXTROMETHORPHAN HYDROBROMIDE, QUINIDINE SULFATE) [Concomitant]
  12. MEGACE (MEGESTROL ACETATE) [Concomitant]
  13. BACLOFEN (BACLOFEN) [Concomitant]
  14. PREVACID (LANSOPRAZOLE) [Concomitant]
  15. ESTROGEN (ESTRADIOL) [Concomitant]

REACTIONS (9)
  - Influenza like illness [None]
  - Feeling abnormal [None]
  - Nervousness [None]
  - Nausea [None]
  - Fatigue [None]
  - Pain [None]
  - Chills [None]
  - Malaise [None]
  - Pyrexia [None]
